FAERS Safety Report 10219295 (Version 3)
Quarter: 2014Q3

REPORT INFORMATION
  Report Type: Spontaneous
  Country: JP (occurrence: None)
  Receive Date: 20140603
  Receipt Date: 20140819
  Transmission Date: 20150326
  Serious: Yes (Other)
  Sender: FDA-Public Use
  Company Number: 2014JP004439

PATIENT
  Age: 53 Year
  Sex: Female

DRUGS (5)
  1. LYRICA [Suspect]
     Active Substance: PREGABALIN
     Indication: FIBROMYALGIA
     Dosage: 150MG, ONCE DAILY, ORAL
     Route: 048
     Dates: start: 20120903, end: 20140510
  2. NORVASC [Concomitant]
     Active Substance: AMLODIPINE BESYLATE
  3. REGNITE (GABAPENTINE ENACARBIL) TABLET, 300MG [Suspect]
     Active Substance: GABAPENTIN ENACARBIL
     Indication: RESTLESS LEGS SYNDROME
     Dosage: 600MG, ONCE DAILY, ORAL
     Route: 048
     Dates: start: 20121105, end: 20140510
  4. NYOSHINSAN (NYOSHINSAN) [Concomitant]
  5. SENNARIDE (SENNOSIDE A+B) [Concomitant]

REACTIONS (3)
  - Hepatic function abnormal [None]
  - Aspartate aminotransferase increased [None]
  - Alanine aminotransferase increased [None]

NARRATIVE: CASE EVENT DATE: 20140509
